FAERS Safety Report 7629611-7 (Version None)
Quarter: 2011Q3

REPORT INFORMATION
  Report Type: 
  Country: None (occurrence: None)
  Receive Date: 20110715
  Receipt Date: 20110707
  Transmission Date: 20111222
  Serious: Yes (Other)
  Sender: FDA-Public Use
  Company Number: 210059

PATIENT
  Age: 31 Month
  Weight: 9 kg

DRUGS (1)
  1. PROPOFOL [Suspect]
     Indication: SEDATION

REACTIONS (5)
  - RESPIRATORY DISORDER [None]
  - COUGH [None]
  - ASPIRATION [None]
  - VOMITING [None]
  - OXYGEN SATURATION DECREASED [None]
